FAERS Safety Report 4462405-2 (Version None)
Quarter: 2004Q3

REPORT INFORMATION
  Report Type: 
  Country: None (occurrence: None)
  Receive Date: 20040924
  Receipt Date: 20040908
  Transmission Date: 20050211
  Serious: Yes (Hospitalization, Other)
  Sender: FDA-Public Use
  Company Number: 2004-DE-04754GD

PATIENT
  Age: 39 Year
  Sex: Male

DRUGS (3)
  1. NEVIRAPINE (NEVIRAPINE)(NR) (NEVIRAPINE) [Suspect]
     Indication: HIV INFECTION
  2. ZIDOVUDINE [Suspect]
     Indication: HIV INFECTION
  3. LAMIVUDINE (LAMIVUDINE) [Suspect]
     Indication: HIV INFECTION

REACTIONS (6)
  - HAEMODIALYSIS [None]
  - HEPATIC FAILURE [None]
  - HEPATITIS TOXIC [None]
  - RENAL FAILURE ACUTE [None]
  - RHABDOMYOLYSIS [None]
  - TOXIC EPIDERMAL NECROLYSIS [None]
